FAERS Safety Report 12535077 (Version 3)
Quarter: 2016Q3

REPORT INFORMATION
  Report Type: Spontaneous
  Country: US (occurrence: US)
  Receive Date: 20160707
  Receipt Date: 20160808
  Transmission Date: 20161109
  Serious: No
  Sender: FDA-Public Use
  Company Number: US-BEH-2016058063

PATIENT
  Sex: Female
  Weight: 93 kg

DRUGS (15)
  1. PREDNISONE. [Concomitant]
     Active Substance: PREDNISONE
  2. L-M-X [Concomitant]
  3. ALEVE [Concomitant]
     Active Substance: NAPROXEN SODIUM
  4. EPI-PEN AUTOINJECTOR [Concomitant]
  5. XANAX [Concomitant]
     Active Substance: ALPRAZOLAM
  6. HIZENTRA [Suspect]
     Active Substance: HUMAN IMMUNOGLOBULIN G
  7. DIPHENHYDRAMINE. [Concomitant]
     Active Substance: DIPHENHYDRAMINE
  8. HIZENTRA [Suspect]
     Active Substance: HUMAN IMMUNOGLOBULIN G
     Route: 058
  9. ALBUTEROL. [Concomitant]
     Active Substance: ALBUTEROL
     Dosage: INHAL SOLN
  10. OXYGEN. [Concomitant]
     Active Substance: OXYGEN
  11. SPIRONOLACTONE. [Concomitant]
     Active Substance: SPIRONOLACTONE
  12. PROGESTERONE. [Concomitant]
     Active Substance: PROGESTERONE
  13. SINGULAIR [Concomitant]
     Active Substance: MONTELUKAST SODIUM
  14. ACETAMINOPHEN. [Concomitant]
     Active Substance: ACETAMINOPHEN
  15. HIZENTRA [Suspect]
     Active Substance: HUMAN IMMUNOGLOBULIN G
     Indication: IMMUNODEFICIENCY COMMON VARIABLE
     Route: 058

REACTIONS (1)
  - Upper respiratory tract infection [Unknown]
